FAERS Safety Report 8472985-8 (Version None)
Quarter: 2012Q2

REPORT INFORMATION
  Report Type: 
  Country: None (occurrence: None)
  Receive Date: 20120627
  Receipt Date: 20120612
  Transmission Date: 20120825
  Serious: No
  Sender: FDA-Public Use
  Company Number: US-ASTRAZENECA-2012SE39619

PATIENT
  Age: 55 Year
  Sex: Male
  Weight: 90.7 kg

DRUGS (5)
  1. SEROQUEL [Suspect]
     Indication: ANXIETY
     Route: 048
     Dates: start: 20111201, end: 20120101
  2. REMARON [Concomitant]
     Indication: DEPRESSION
     Dates: start: 20111201
  3. SEROQUEL [Suspect]
     Route: 048
     Dates: start: 20120101
  4. SEROQUEL [Suspect]
     Route: 048
     Dates: start: 20120101
  5. SEROQUEL [Suspect]
     Indication: DEPRESSION
     Route: 048
     Dates: start: 20111201, end: 20120101

REACTIONS (2)
  - OFF LABEL USE [None]
  - BLOOD GLUCOSE INCREASED [None]
